FAERS Safety Report 19027366 (Version 7)
Quarter: 2025Q3

REPORT INFORMATION
  Report Type: Report from Study
  Country: PA (occurrence: PA)
  Receive Date: 20210318
  Receipt Date: 20250714
  Transmission Date: 20251021
  Serious: Yes (Hospitalization, Other)
  Sender: NOVARTIS
  Company Number: NVSC2021PA058720

PATIENT
  Age: 49 Year
  Sex: Female
  Weight: 78.005 kg

DRUGS (4)
  1. GILENYA [Suspect]
     Active Substance: FINGOLIMOD HYDROCHLORIDE
     Indication: Multiple sclerosis
     Dosage: 0.5 MG, QD
     Route: 048
     Dates: start: 20210310, end: 20220405
  2. RIVOTRIL [Concomitant]
     Active Substance: CLONAZEPAM
     Indication: Initial insomnia
     Dosage: 1 DF, QD (EVERY NIGHT)
     Route: 065
  3. FLUOXETINE [Concomitant]
     Active Substance: FLUOXETINE HYDROCHLORIDE
     Indication: Substance-induced mood disorder
     Dosage: 1 DF, QD (EVERY MORNING)
     Route: 065
  4. DULOXETINE [Concomitant]
     Active Substance: DULOXETINE
     Indication: Sleep disorder
     Dosage: 20 MG, QD (EVERY NIGHT) (MORE THAN 5 YEARS AGO NOW)
     Route: 065

REACTIONS (21)
  - Multiple sclerosis [Unknown]
  - Dyskinesia [Not Recovered/Not Resolved]
  - Muscular weakness [Not Recovered/Not Resolved]
  - Pain in extremity [Unknown]
  - Headache [Not Recovered/Not Resolved]
  - Drug hypersensitivity [Unknown]
  - Tonic posturing [Unknown]
  - Seizure [Recovered/Resolved]
  - Uterine leiomyoma [Unknown]
  - Generalised oedema [Unknown]
  - Somnolence [Not Recovered/Not Resolved]
  - Muscle rigidity [Not Recovered/Not Resolved]
  - Loss of consciousness [Unknown]
  - Dizziness [Not Recovered/Not Resolved]
  - Seizure [Unknown]
  - Myalgia [Unknown]
  - Asthenia [Not Recovered/Not Resolved]
  - Drug intolerance [Not Recovered/Not Resolved]
  - Hypoaesthesia [Not Recovered/Not Resolved]
  - Epilepsy [Unknown]
  - Tension [Unknown]

NARRATIVE: CASE EVENT DATE: 20210301
